FAERS Safety Report 19658227 (Version 2)
Quarter: 2021Q3

REPORT INFORMATION
  Report Type: Spontaneous
  Country: US (occurrence: US)
  Receive Date: 20210804
  Receipt Date: 20210908
  Transmission Date: 20211014
  Serious: Yes (Hospitalization)
  Sender: FDA-Public Use
  Company Number: NVSC2021US173013

PATIENT
  Sex: Female

DRUGS (4)
  1. IRON [Concomitant]
     Active Substance: IRON
     Indication: PRODUCT USED FOR UNKNOWN INDICATION
     Dosage: UNK, UNKNOWN
     Route: 065
  2. DUROLANE [Concomitant]
     Active Substance: HYALURONIC ACID
     Dosage: UNK
     Route: 065
     Dates: start: 202012
  3. DUROLANE [Concomitant]
     Active Substance: HYALURONIC ACID
     Indication: PAIN
     Dosage: UNK
     Route: 065
     Dates: start: 201912
  4. RECLAST [Suspect]
     Active Substance: ZOLEDRONIC ACID
     Indication: OSTEOPOROSIS
     Dosage: UNK
     Route: 065
     Dates: start: 20210309

REACTIONS (4)
  - Pruritus [Unknown]
  - Erythema [Unknown]
  - Oedema peripheral [Unknown]
  - Anaemia [Unknown]
